FAERS Safety Report 7735832-5 (Version None)
Quarter: 2011Q3

REPORT INFORMATION
  Report Type: 
  Country: None (occurrence: None)
  Receive Date: 20110908
  Receipt Date: 20110829
  Transmission Date: 20111222
  Serious: No
  Sender: FDA-Public Use
  Company Number: US-BIOGENIDEC-2011BI033331

PATIENT
  Age: 46 Year
  Sex: Male

DRUGS (2)
  1. TYSABRI [Suspect]
     Indication: MULTIPLE SCLEROSIS
     Route: 042
     Dates: start: 20110516
  2. TYSABRI [Suspect]
     Route: 042
     Dates: start: 20070327, end: 20110311

REACTIONS (3)
  - DEPRESSION [None]
  - CARPAL TUNNEL SYNDROME [None]
  - ASTHENIA [None]
